FAERS Safety Report 9347396 (Version 1)
Quarter: 2013Q2

REPORT INFORMATION
  Report Type: Report from Study
  Country: US (occurrence: US)
  Receive Date: 20130613
  Receipt Date: 20130613
  Transmission Date: 20140414
  Serious: Yes (Other)
  Sender: FDA-Public Use
  Company Number: US-RB-001337-10

PATIENT
  Age: 52 Year
  Sex: Male

DRUGS (2)
  1. SUBOXONE TABLET [Suspect]
     Indication: DRUG DEPENDENCE
     Route: 060
     Dates: start: 2010
  2. SUBOXONE TABLET [Suspect]
     Indication: PAIN MANAGEMENT
     Route: 060
     Dates: start: 2010

REACTIONS (9)
  - Renal impairment [Recovered/Resolved]
  - Liver injury [Recovered/Resolved]
  - Weight increased [Recovered/Resolved]
  - Glucose tolerance impaired [Recovered/Resolved]
  - Rhinorrhoea [Unknown]
  - Yawning [Recovered/Resolved]
  - Drug withdrawal syndrome [Recovered/Resolved]
  - Neuropathy peripheral [Recovered/Resolved]
  - Tinnitus [Recovered/Resolved]
